FAERS Safety Report 16589990 (Version 1)
Quarter: 2019Q3

REPORT INFORMATION
  Report Type: Spontaneous
  Country: CL (occurrence: CL)
  Receive Date: 20190718
  Receipt Date: 20190718
  Transmission Date: 20191004
  Serious: Yes (Other)
  Sender: FDA-Public Use
  Company Number: CL-EMD SERONO-9103956

PATIENT
  Age: 39 Year
  Sex: Female

DRUGS (4)
  1. OVIDREL [Suspect]
     Active Substance: CHORIOGONADOTROPIN ALFA
     Indication: IN VITRO FERTILISATION
  2. GONAL-F [Suspect]
     Active Substance: FOLLITROPIN
     Dosage: GONAL F 405 (UNSPECIFIED UNITS)
  3. CETROTIDE [Suspect]
     Active Substance: CETRORELIX ACETATE
     Indication: IN VITRO FERTILISATION
  4. GONAL-F [Suspect]
     Active Substance: FOLLITROPIN
     Indication: IN VITRO FERTILISATION
     Dosage: GONAL F 900 (UNSPECIFIED UNITS),

REACTIONS (2)
  - Procedural failure [Unknown]
  - Abortion spontaneous [Recovered/Resolved]
